FAERS Safety Report 9120206 (Version 1)
Quarter: 2013Q1

REPORT INFORMATION
  Report Type: Spontaneous
  Country: AT (occurrence: AT)
  Receive Date: 20130226
  Receipt Date: 20130226
  Transmission Date: 20140127
  Serious: Yes (Other)
  Sender: FDA-Public Use
  Company Number: AT-PFIZER INC-2013066477

PATIENT
  Age: 27 Year
  Sex: Female

DRUGS (4)
  1. ETOPOSIDE [Suspect]
     Indication: EWING^S SARCOMA
     Dosage: 150 MG/M2/DAY
  2. VINCRISTINE SULFATE [Suspect]
     Indication: EWING^S SARCOMA
     Dosage: 2 MG/DAY, ON DAY 1 STARTING IN GESTATIONAL WEEK 18+6
  3. DOXORUBICIN HCL [Suspect]
     Indication: EWING^S SARCOMA
     Dosage: 20 MG/M2/DAY ON DAYS 1-3
  4. IFOSFAMIDE [Suspect]
     Indication: EWING^S SARCOMA
     Dosage: 3000 MG/M2/DAY

REACTIONS (1)
  - Foetal death [Unknown]
